FAERS Safety Report 20968902 (Version 1)
Quarter: 2022Q2

REPORT INFORMATION
  Report Type: Spontaneous
  Country: US (occurrence: None)
  Receive Date: 20220616
  Receipt Date: 20220616
  Transmission Date: 20220721
  Serious: Yes (Life-Threatening, Hospitalization, Disabling)
  Sender: FDA-Public Use
  Company Number: None

PATIENT
  Age: 17 Year
  Sex: Female

DRUGS (2)
  1. MINOCYCLINE [Suspect]
     Active Substance: MINOCYCLINE HYDROCHLORIDE
     Indication: Skin disorder
     Dates: start: 20210810, end: 20211023
  2. MINOCYCLINE [Suspect]
     Active Substance: MINOCYCLINE HYDROCHLORIDE
     Indication: Rash

REACTIONS (5)
  - Headache [None]
  - Back pain [None]
  - Gaze palsy [None]
  - Idiopathic intracranial hypertension [None]
  - Papilloedema [None]

NARRATIVE: CASE EVENT DATE: 20211023
